FAERS Safety Report 6492852-9 (Version None)
Quarter: 2009Q4

REPORT INFORMATION
  Report Type: 
  Country: None (occurrence: None)
  Receive Date: 20091211
  Receipt Date: 20091211
  Transmission Date: 20100525
  Serious: Yes (Other)
  Sender: FDA-Public Use
  Company Number: None

PATIENT
  Age: 42 Year
  Sex: Female
  Weight: 55.3388 kg

DRUGS (1)
  1. BUPROPION HCL [Suspect]
     Indication: DEPRESSION
     Dosage: 150 MG AND THEN UPPED TO 300 MG ONCE PER DAY PO
     Route: 048
     Dates: start: 20091116, end: 20091209

REACTIONS (2)
  - LARYNGITIS [None]
  - VOCAL CORD PARALYSIS [None]
